FAERS Safety Report 4868890-6 (Version None)
Quarter: 2005Q4

REPORT INFORMATION
  Report Type: 
  Country: None (occurrence: None)
  Receive Date: 20051229
  Receipt Date: 20050112
  Transmission Date: 20060501
  Serious: Yes (Death, Hospitalization, Other)
  Sender: FDA-Public Use
  Company Number: US-MERCK-0501USA01927

PATIENT
  Age: 78 Year
  Sex: Female
  Weight: 75 kg

DRUGS (1)
  1. VIOXX [Suspect]
     Indication: MONARTHRITIS
     Route: 048
     Dates: start: 19990101, end: 20020501

REACTIONS (6)
  - CARDIAC DISORDER [None]
  - CARDIAC FAILURE [None]
  - CARDIO-RESPIRATORY ARREST [None]
  - CHRONIC OBSTRUCTIVE PULMONARY DISEASE [None]
  - DIABETES MELLITUS NON-INSULIN-DEPENDENT [None]
  - MYOCARDIAL INFARCTION [None]
